FAERS Safety Report 7374651-9 (Version None)
Quarter: 2011Q1

REPORT INFORMATION
  Report Type: 
  Country: None (occurrence: None)
  Receive Date: 20110325
  Receipt Date: 20100616
  Transmission Date: 20110831
  Serious: No
  Sender: FDA-Public Use
  Company Number: US-MYLANLABS-2010S1010847

PATIENT
  Age: 54 Year
  Sex: Female
  Weight: 63.5 kg

DRUGS (4)
  1. FENTANYL-100 [Suspect]
     Indication: PAIN
     Dosage: CHANGED PATCHES Q3D
     Route: 062
     Dates: start: 20060101, end: 20100616
  2. LORAZEPAM [Concomitant]
  3. BENADRYL [Concomitant]
  4. PERCOCET [Concomitant]

REACTIONS (3)
  - DRUG INEFFECTIVE [None]
  - PAIN [None]
  - DRUG WITHDRAWAL SYNDROME [None]
